FAERS Safety Report 23225099 (Version 3)
Quarter: 2024Q1

REPORT INFORMATION
  Report Type: Spontaneous
  Country: GB (occurrence: None)
  Receive Date: 20231124
  Receipt Date: 20240101
  Transmission Date: 20240410
  Serious: Yes (Other)
  Sender: FDA-Public Use
  Company Number: GB-ROCHE-3459333

PATIENT
  Age: 86 Year
  Sex: Female

DRUGS (2)
  1. VABYSMO [Suspect]
     Active Substance: FARICIMAB\FARICIMAB-SVOA
     Indication: Neovascular age-related macular degeneration
     Dosage: DATE OF LAST VABYSMO INJECTION ON 15/SEP/2023. TOTAL NUMBER OF VABYSMO INJECTIONS RECEIVED PRIOR TO
     Route: 065
     Dates: start: 20221018, end: 20230915
  2. VABYSMO [Concomitant]
     Active Substance: FARICIMAB\FARICIMAB-SVOA
     Dates: start: 20221018, end: 20230622

REACTIONS (2)
  - Vitritis [Not Recovered/Not Resolved]
  - Choroidal detachment [Not Recovered/Not Resolved]

NARRATIVE: CASE EVENT DATE: 20231013
